FAERS Safety Report 23157055 (Version 1)
Quarter: 2023Q4

REPORT INFORMATION
  Report Type: Spontaneous
  Country: US (occurrence: US)
  Receive Date: 20231108
  Receipt Date: 20231108
  Transmission Date: 20240109
  Serious: Yes (Other)
  Sender: FDA-Public Use
  Company Number: US-HALEON-USCH2023052250

PATIENT

DRUGS (1)
  1. THERAFLU NOS [Suspect]
     Active Substance: ACETAMINOPHEN AND OR DEXTROMETHORPHAN AND OR DIPHENHYDRAMINE AND OR GUAIFENESIN AND OR PHENYLEPHRINE
     Indication: Nasopharyngitis
     Dosage: 2 DF (SO FAR I HAVE TAKEN 2)
     Dates: start: 20231031

REACTIONS (1)
  - Rectal haemorrhage [Unknown]

NARRATIVE: CASE EVENT DATE: 20231031
